FAERS Safety Report 5977780-7 (Version None)
Quarter: 2008Q4

REPORT INFORMATION
  Report Type: 
  Country: None (occurrence: None)
  Receive Date: 20081202
  Receipt Date: 20081202
  Transmission Date: 20090506
  Serious: No
  Sender: FDA-Public Use
  Company Number: None

PATIENT
  Sex: Male

DRUGS (1)
  1. HALDOL DEC 100MG [Suspect]
     Dosage: 100MG Q WEEK IM
     Route: 030
     Dates: start: 20071101, end: 20081103

REACTIONS (1)
  - TREMOR [None]
